FAERS Safety Report 8433793-7 (Version None)
Quarter: 2012Q2

REPORT INFORMATION
  Report Type: 
  Country: None (occurrence: None)
  Receive Date: 20120323
  Receipt Date: 20110715
  Transmission Date: 20120825
  Serious: Yes (Other)
  Sender: FDA-Public Use
  Company Number: 163-21880-11071961

PATIENT
  Age: 38 Year
  Sex: Male

DRUGS (3)
  1. LENALIDOMIDE [Suspect]
     Indication: MULTIPLE MYELOMA
     Dosage: 20 MG, DAILY, PO   15 MG, DAILY, PO   10 MG, 1 IN 1 D, PO
     Route: 048
     Dates: start: 20080701
  2. LENALIDOMIDE [Suspect]
     Indication: MULTIPLE MYELOMA
     Dosage: 20 MG, DAILY, PO   15 MG, DAILY, PO   10 MG, 1 IN 1 D, PO
     Route: 048
     Dates: start: 20110701
  3. LENALIDOMIDE [Suspect]
     Indication: MULTIPLE MYELOMA
     Dosage: 20 MG, DAILY, PO   15 MG, DAILY, PO   10 MG, 1 IN 1 D, PO
     Route: 048
     Dates: start: 20080301

REACTIONS (1)
  - PANCYTOPENIA [None]
